FAERS Safety Report 10903711 (Version 5)
Quarter: 2015Q3

REPORT INFORMATION
  Report Type: Spontaneous
  Country: GB (occurrence: GB)
  Receive Date: 20150311
  Receipt Date: 20150707
  Transmission Date: 20151125
  Serious: Yes (Disabling)
  Sender: FDA-Public Use
  Company Number: GB-TEVA-545283ACC

PATIENT
  Age: 74 Year
  Sex: Female

DRUGS (33)
  1. EURAX [Concomitant]
     Active Substance: CROTAMITON
     Route: 061
     Dates: start: 20140724
  2. PACLITAXEL. [Suspect]
     Active Substance: PACLITAXEL
     Indication: HER-2 POSITIVE BREAST CANCER
     Dosage: THREE WEEKLY (DAY 1 AND DAY 8); LAST DOSE PRIOR TO SAE: 28/MAR/2014
     Route: 042
     Dates: start: 20131129
  3. PERTUZUMAB [Suspect]
     Active Substance: PERTUZUMAB
     Indication: HER-2 POSITIVE BREAST CANCER
     Dosage: LOADING DOSE
     Route: 042
     Dates: start: 20131129, end: 20131129
  4. PIRITON [Concomitant]
     Active Substance: CHLORPHENIRAMINE MALEATE
     Route: 065
     Dates: start: 20140724
  5. DEXAMETHASONES [Concomitant]
  6. HERCEPTIN [Suspect]
     Active Substance: TRASTUZUMAB
     Dosage: LOADING DOSE
     Route: 042
     Dates: start: 20131129, end: 20131129
  7. PERTUZUMAB [Suspect]
     Active Substance: PERTUZUMAB
     Dosage: MAINTENANCE DOSE; LAST DOSE PRIOR TO SAE: 13/JAN/2015
     Route: 042
     Dates: end: 20150113
  8. AMITRIPTYLINE [Concomitant]
     Active Substance: AMITRIPTYLINE
     Route: 065
     Dates: start: 2013
  9. RAMIPRIL. [Concomitant]
     Active Substance: RAMIPRIL
     Route: 065
     Dates: start: 2013, end: 20140310
  10. SANDO-K [Concomitant]
     Active Substance: POTASSIUM BICARBONATE\POTASSIUM CHLORIDE
     Route: 065
     Dates: start: 20131227, end: 20131231
  11. METOCLOPRAMIDE. [Concomitant]
     Active Substance: METOCLOPRAMIDE
     Route: 065
     Dates: start: 20131213, end: 20131218
  12. CODEINE PHOSPHATE [Concomitant]
     Active Substance: CODEINE PHOSPHATE
     Dosage: 30 MG PRN 8 HOURLY
     Route: 065
     Dates: start: 20131227, end: 20140102
  13. GLICLAZIDE [Concomitant]
     Active Substance: GLICLAZIDE
     Dosage: 4 DOSAGE FORMS DAILY;
     Route: 065
     Dates: start: 2013
  14. HYDROCORTISONE. [Concomitant]
     Active Substance: HYDROCORTISONE
     Dosage: 1%
     Route: 065
     Dates: start: 20140724
  15. CYCLIZINE [Concomitant]
     Active Substance: CYCLIZINE
     Route: 065
     Dates: start: 20140307, end: 20140314
  16. ASPIRIN. [Concomitant]
     Active Substance: ASPIRIN
     Route: 065
     Dates: start: 2013
  17. COLOFAC [Concomitant]
     Active Substance: MEBEVERINE HYDROCHLORIDE
     Dosage: 405 MILLIGRAM DAILY;
     Route: 065
     Dates: start: 2013
  18. HUMULIN NOS [Concomitant]
     Active Substance: INSULIN HUMAN
     Dosage: 28 UNITS IN THE MORNING
     Route: 065
     Dates: start: 2013
  19. RANITIDINE [Concomitant]
     Active Substance: RANITIDINE\RANITIDINE HYDROCHLORIDE
     Route: 065
     Dates: start: 20131129, end: 20140411
  20. ROSUVASTATIN [Concomitant]
     Active Substance: ROSUVASTATIN
     Route: 065
     Dates: start: 2013
  21. VICTOZA [Concomitant]
     Active Substance: LIRAGLUTIDE
     Dosage: 0.6 UNITS
     Route: 065
     Dates: start: 2013
  22. CHLORPHENIRAMINE. [Concomitant]
     Active Substance: CHLORPHENIRAMINE
     Route: 065
     Dates: start: 20131129, end: 20140411
  23. COCODAMOL [Concomitant]
     Active Substance: ACETAMINOPHEN\CODEINE PHOSPHATE
     Indication: PAIN
     Dosage: CODEINE PHOSPHATE 30 MG / PARACETAMOL 500 MG
     Route: 065
     Dates: start: 2013
  24. LOPERAMIDE [Concomitant]
     Active Substance: LOPERAMIDE
     Route: 065
     Dates: start: 20131227, end: 20140102
  25. PEPPERMINT OIL [Concomitant]
     Active Substance: PEPPERMINT OIL
     Route: 065
     Dates: start: 2013
  26. CYCLIZINE [Concomitant]
     Active Substance: CYCLIZINE
     Route: 065
     Dates: start: 20140328, end: 20140404
  27. CYCLIZINE [Concomitant]
     Active Substance: CYCLIZINE
     Route: 065
     Dates: start: 20140110, end: 20140124
  28. HERCEPTIN [Suspect]
     Active Substance: TRASTUZUMAB
     Indication: HER-2 POSITIVE BREAST CANCER
     Dosage: MAINTENANCE DOSE; LAST DOSE PRIOR TO SAE: 13/JAN/2015
     Route: 042
     Dates: end: 20150113
  29. ATENOLOL. [Concomitant]
     Active Substance: ATENOLOL
     Route: 065
     Dates: start: 2013
  30. LANSOPRAZOLE. [Concomitant]
     Active Substance: LANSOPRAZOLE
     Dosage: 30 MILLIGRAM DAILY;
     Route: 065
     Dates: start: 2013
  31. NICORANDIL [Concomitant]
     Active Substance: NICORANDIL
     Dosage: 20 MILLIGRAM DAILY;
     Route: 065
     Dates: start: 2013
  32. CYCLIZINE [Concomitant]
     Active Substance: CYCLIZINE
     Route: 065
     Dates: start: 20131227, end: 20140102
  33. CYCLIZINE [Concomitant]
     Active Substance: CYCLIZINE
     Route: 065
     Dates: start: 20140214, end: 20140221

REACTIONS (1)
  - Crohn^s disease [Not Recovered/Not Resolved]

NARRATIVE: CASE EVENT DATE: 20150116
